FAERS Safety Report 18181595 (Version 1)
Quarter: 2020Q3

REPORT INFORMATION
  Report Type: Spontaneous
  Country: ES (occurrence: ES)
  Receive Date: 20200821
  Receipt Date: 20200821
  Transmission Date: 20201103
  Serious: Yes (Life-Threatening, Hospitalization)
  Sender: FDA-Public Use
  Company Number: ES-CADILA HEALTHCARE LIMITED-ES-ZYDUS-027385

PATIENT

DRUGS (7)
  1. PULMICORT TURBUHALER [Concomitant]
     Active Substance: BUDESONIDE
     Route: 055
     Dates: start: 20060101
  2. MICARDIS [Concomitant]
     Active Substance: TELMISARTAN
     Dosage: 0?0?1
     Route: 048
     Dates: start: 20150101
  3. METFORMIN [Suspect]
     Active Substance: METFORMIN HYDROCHLORIDE
     Indication: DIABETES MELLITUS
     Route: 048
     Dates: start: 20170817, end: 20170909
  4. OMEPRAZOL [Concomitant]
     Active Substance: OMEPRAZOLE
     Dosage: 1 CP DIA (20MG)
     Route: 048
     Dates: start: 20150101
  5. PREDNISONA [Concomitant]
     Active Substance: PREDNISONE
     Dosage: 5 MG DIA
     Route: 048
     Dates: start: 20150101
  6. FUROSEMIDA [Concomitant]
     Active Substance: FUROSEMIDE
     Dosage: 1?0?0 (40MG)
     Route: 048
     Dates: start: 20150101
  7. EMULIQUEN LAXANTE (PARAFFIN\SODIUM PICOSULFATE) [Suspect]
     Active Substance: PARAFFIN\SODIUM PICOSULFATE
     Indication: PRODUCT USED FOR UNKNOWN INDICATION
     Dosage: 1?0?1
     Route: 048
     Dates: start: 20170817, end: 20170909

REACTIONS (4)
  - Hyponatraemia [Recovered/Resolved]
  - Acute kidney injury [Recovered/Resolved]
  - Lactic acidosis [Recovered/Resolved]
  - Hyperkalaemia [Recovered/Resolved]

NARRATIVE: CASE EVENT DATE: 20170909
